FAERS Safety Report 8067060-0 (Version None)
Quarter: 2012Q1

REPORT INFORMATION
  Report Type: 
  Country: None (occurrence: None)
  Receive Date: 20120124
  Receipt Date: 20120118
  Transmission Date: 20120608
  Serious: Yes (Hospitalization, Disabling, Other)
  Sender: FDA-Public Use
  Company Number: US-ACTELION-A-NJ2011-44962

PATIENT

DRUGS (2)
  1. TRACLEER [Suspect]
     Indication: PULMONARY ARTERIAL HYPERTENSION
     Dosage: UNK
     Route: 048
     Dates: start: 20070119
  2. REVATIO [Concomitant]

REACTIONS (5)
  - PERIPHERAL VASCULAR DISORDER [None]
  - TOE AMPUTATION [None]
  - INFECTION [None]
  - STENT PLACEMENT [None]
  - LOCALISED INFECTION [None]
